FAERS Safety Report 7474883-5 (Version None)
Quarter: 2011Q2

REPORT INFORMATION
  Report Type: 
  Country: None (occurrence: None)
  Receive Date: 20110505
  Receipt Date: 20110421
  Transmission Date: 20111010
  Serious: Yes (Other)
  Sender: FDA-Public Use
  Company Number: 2011AP000522

PATIENT
  Age: 50 Year
  Sex: Male

DRUGS (13)
  1. CODEINE PHOSPHATE (CODEINE PHOSPHATE) [Concomitant]
  2. IMIPRAMINE [Concomitant]
  3. TRAMADOL HYDROCHLORIDE [Concomitant]
  4. ATORVASTATIN [Concomitant]
  5. ZOLPIDEM TARTRATE [Concomitant]
  6. ACETYLSALICYLIC ACID (ACETYLSALICYLIC ACID) [Concomitant]
  7. ATENOLOL [Concomitant]
  8. OMEPRAZOLE [Suspect]
     Indication: DYSPEPSIA
     Dosage: 20 MG, PO
     Route: 048
     Dates: start: 20090924, end: 20110116
  9. ACETAMINOPHEN [Concomitant]
  10. METFORMIN (METFORMIN) [Concomitant]
  11. INSULIN ASPART (INSULIN ASPART) [Concomitant]
  12. AMLODIPINE [Concomitant]
  13. VALSARTAN [Concomitant]

REACTIONS (1)
  - ERECTILE DYSFUNCTION [None]
